FAERS Safety Report 5143535-9 (Version None)
Quarter: 2006Q4

REPORT INFORMATION
  Report Type: 
  Country: None (occurrence: None)
  Receive Date: 20061030
  Receipt Date: 20060731
  Transmission Date: 20070319
  Serious: Yes (Hospitalization, Disabling)
  Sender: FDA-Public Use
  Company Number: 430011N06USA

PATIENT
  Age: 55 Year
  Sex: Female
  Weight: 57 kg

DRUGS (7)
  1. NOVANTRONE [Suspect]
     Dosage: 1 IN 3 MONTHS, INTRAVENOUS (NOT OTHERWISE SPECIFIED)
     Route: 042
     Dates: start: 20020211, end: 20030625
  2. INTERFERON BETA [Concomitant]
  3. METOPROLOL SUCCINATE [Concomitant]
  4. LISINOPRIL [Concomitant]
  5. METHOTREXATE [Concomitant]
  6. METHYLPREDNISOLONE [Concomitant]
  7. BETASERON [Concomitant]

REACTIONS (10)
  - ASTHENIA [None]
  - CARDIOMYOPATHY [None]
  - CHEST PAIN [None]
  - DEEP VEIN THROMBOSIS [None]
  - DILATATION VENTRICULAR [None]
  - EJECTION FRACTION DECREASED [None]
  - FATIGUE [None]
  - MITRAL VALVE INCOMPETENCE [None]
  - PULMONARY EMBOLISM [None]
  - TRICUSPID VALVE INCOMPETENCE [None]
